FAERS Safety Report 10462162 (Version 2)
Quarter: 2014Q3

REPORT INFORMATION
  Report Type: Spontaneous
  Country: US (occurrence: US)
  Receive Date: 20140918
  Receipt Date: 20140918
  Transmission Date: 20150326
  Serious: Yes (Hospitalization)
  Sender: FDA-Public Use
  Company Number: US-GLAXOSMITHKLINE-A0888825A

PATIENT
  Sex: Female

DRUGS (2)
  1. AVANDAMET [Suspect]
     Active Substance: METFORMIN HYDROCHLORIDE\ROSIGLITAZONE MALEATE
     Indication: DIABETES MELLITUS
     Route: 048
     Dates: start: 20060822
  2. AVANDIA [Suspect]
     Active Substance: ROSIGLITAZONE MALEATE
     Indication: DIABETES MELLITUS
     Dosage: 8MG PER DAY
     Route: 048
     Dates: start: 20021108, end: 20100319

REACTIONS (8)
  - Headache [Unknown]
  - Gastric disorder [Unknown]
  - Coronary artery disease [Unknown]
  - Atrial fibrillation [Unknown]
  - Myocardial infarction [Not Recovered/Not Resolved]
  - Supraventricular tachycardia [Unknown]
  - Cardiac disorder [Unknown]
  - Pain [Unknown]
